FAERS Safety Report 12889108 (Version 3)
Quarter: 2017Q1

REPORT INFORMATION
  Report Type: Spontaneous
  Country: US (occurrence: US)
  Receive Date: 20161027
  Receipt Date: 20170123
  Transmission Date: 20170428
  Serious: Yes (Other)
  Sender: FDA-Public Use
  Company Number: US-PFIZER INC-2016493934

PATIENT
  Age: 60 Year
  Sex: Female

DRUGS (1)
  1. AVINZA [Suspect]
     Active Substance: MORPHINE SULFATE
     Indication: ANALGESIC THERAPY
     Dosage: 1 DF, DAILY (1 CAP WITH 24 HOURS)
     Route: 048

REACTIONS (8)
  - Spinal cord compression [Unknown]
  - IVth nerve paralysis [Unknown]
  - Limb deformity [Unknown]
  - Drug ineffective [Unknown]
  - Intervertebral disc compression [Unknown]
  - IIIrd nerve paralysis [Unknown]
  - Trigeminal nerve paresis [Unknown]
  - Headache [Unknown]

NARRATIVE: CASE EVENT DATE: 2016
